FAERS Safety Report 12770838 (Version 1)
Quarter: 2016Q3

REPORT INFORMATION
  Report Type: Spontaneous
  Country: US (occurrence: US)
  Receive Date: 20160922
  Receipt Date: 20160922
  Transmission Date: 20161109
  Serious: Yes (Disabling)
  Sender: FDA-Public Use
  Company Number: None

PATIENT
  Sex: Male

DRUGS (2)
  1. INVEGA SUSTENNA [Suspect]
     Active Substance: PALIPERIDONE PALMITATE
     Indication: BIPOLAR DISORDER
  2. ZYPREXA OLANZAPINE [Concomitant]

REACTIONS (4)
  - Abdominal pain upper [None]
  - Constipation [None]
  - Internal haemorrhage [None]
  - Tremor [None]
